FAERS Safety Report 15237848 (Version 1)
Quarter: 2018Q3

REPORT INFORMATION
  Report Type: Spontaneous
  Country: DE (occurrence: DE)
  Receive Date: 20180803
  Receipt Date: 20180803
  Transmission Date: 20181010
  Serious: Yes (Hospitalization, Other)
  Sender: FDA-Public Use
  Company Number: PHHY2018DE063032

PATIENT
  Age: 52 Year
  Sex: Female
  Weight: 134 kg

DRUGS (10)
  1. DOCETAXEL. [Suspect]
     Active Substance: DOCETAXEL
     Indication: BREAST CANCER
     Dosage: 150 MG, QW3
     Route: 042
     Dates: start: 20160922
  2. OXYGEN. [Concomitant]
     Active Substance: OXYGEN
     Indication: METASTASES TO PLEURA
     Dosage: 24 OT, QD (2.0 L/MIN)
     Route: 045
     Dates: start: 20160906
  3. PACLITAXEL. [Suspect]
     Active Substance: PACLITAXEL
     Indication: PRODUCT USED FOR UNKNOWN INDICATION
     Dosage: 150 MG, QW3
     Route: 042
     Dates: start: 20160924
  4. PERTUZUMAB. [Suspect]
     Active Substance: PERTUZUMAB
     Indication: BREAST CANCER
     Dosage: 420 MG, QW3
     Route: 042
     Dates: start: 20160916, end: 20161109
  5. DEXAMETHASONE. [Concomitant]
     Active Substance: DEXAMETHASONE
     Indication: PROPHYLAXIS
     Route: 048
  6. SALBUTAMOL [Concomitant]
     Active Substance: ALBUTEROL
     Indication: ASTHMA
     Dosage: 1 OT, UNK
     Route: 055
  7. SYMBICORT [Concomitant]
     Active Substance: BUDESONIDE\FORMOTEROL FUMARATE DIHYDRATE
     Indication: METASTASES TO PLEURA
     Dosage: 2 OT, QD
     Route: 055
     Dates: start: 201606
  8. HERCEPTIN [Suspect]
     Active Substance: TRASTUZUMAB
     Indication: BREAST CANCER
     Dosage: 876 MG, QW3
     Route: 042
     Dates: start: 20160922
  9. SPIRIVA [Concomitant]
     Active Substance: TIOTROPIUM BROMIDE MONOHYDRATE
     Indication: METASTASES TO PLEURA
     Dosage: 18 MG, QD
     Route: 055
     Dates: start: 201606
  10. FUROSEMID [Concomitant]
     Active Substance: FUROSEMIDE
     Indication: PRODUCT USED FOR UNKNOWN INDICATION
     Dosage: 40 MG, QD
     Route: 048
     Dates: start: 20160920

REACTIONS (12)
  - Gastritis [Not Recovered/Not Resolved]
  - Chills [Recovered/Resolved]
  - Oesophageal candidiasis [Not Recovered/Not Resolved]
  - Dysgeusia [Recovered/Resolved]
  - Stomatitis [Recovered/Resolved]
  - Constipation [Recovered/Resolved]
  - Lethargy [Not Recovered/Not Resolved]
  - Anaphylactic reaction [Recovered/Resolved]
  - Pulmonary function test decreased [Not Recovered/Not Resolved]
  - Productive cough [Recovered/Resolved]
  - Painful respiration [Not Recovered/Not Resolved]
  - Arthralgia [Not Recovered/Not Resolved]

NARRATIVE: CASE EVENT DATE: 20160924
